FAERS Safety Report 7435462-9 (Version None)
Quarter: 2011Q2

REPORT INFORMATION
  Report Type: 
  Country: None (occurrence: None)
  Receive Date: 20110415
  Receipt Date: 20110405
  Transmission Date: 20111010
  Serious: Yes (Death, Hospitalization)
  Sender: FDA-Public Use
  Company Number: 11-212

PATIENT
  Age: 67 Year
  Sex: Male

DRUGS (9)
  1. IBUPROFEN [Suspect]
     Dosage: 1.2 G ORAL
     Route: 048
  2. ERLOTINIB [Concomitant]
  3. DALTEPARIN SODIUM [Suspect]
     Indication: LUNG NEOPLASM MALIGNANT
  4. POTASSIUM [Concomitant]
  5. SIMVASTATIN [Concomitant]
  6. ADALAT [Concomitant]
  7. PARACETAMOL [Concomitant]
  8. UNSPECIFIED DRUGS [Concomitant]
  9. CANDESARTAN CILEXETIL [Suspect]

REACTIONS (6)
  - LUNG ADENOCARCINOMA [None]
  - RENAL FAILURE [None]
  - HAEMOGLOBIN DECREASED [None]
  - PLEURAL EFFUSION [None]
  - SELF-MEDICATION [None]
  - NEOPLASM PROGRESSION [None]
